FAERS Safety Report 6819585-0 (Version None)
Quarter: 2010Q3

REPORT INFORMATION
  Report Type: 
  Country: None (occurrence: None)
  Receive Date: 20100701
  Receipt Date: 20090814
  Transmission Date: 20110219
  Serious: No
  Sender: FDA-Public Use
  Company Number: US-TEVA-205963USA

PATIENT
  Age: 50 Year
  Sex: Male

DRUGS (12)
  1. AZILECT [Interacting]
     Indication: MOTOR DYSFUNCTION
     Route: 048
  2. ROPINIROLE HYDROCHLORIDE [Suspect]
     Route: 048
     Dates: start: 20090412
  3. SINEMET [Suspect]
     Route: 048
  4. DULOXETINE HYDROCHLORIDE [Suspect]
     Indication: DEPRESSION
     Route: 048
  5. CLONAZEPAM [Suspect]
     Indication: INITIAL INSOMNIA
     Dosage: 0.5MG
     Route: 048
  6. AMANTADINE HCL [Suspect]
     Indication: DYSKINESIA
     Route: 048
  7. TRIHEXYPHENIDYL HCL [Suspect]
     Indication: MUSCLE RIGIDITY
     Route: 048
  8. SINEMET [Suspect]
     Indication: GAIT DISTURBANCE
     Route: 048
  9. CENTRUM [Suspect]
     Indication: ROUTINE HEALTH MAINTENANCE
     Route: 048
  10. ERGOCALCIFEROL [Suspect]
     Route: 048
  11. LINUM USITATISSIMUM SEED [Suspect]
     Dosage: 1 TABLESPOON PER DAY
     Route: 048
  12. UBIDECARENONE [Suspect]
     Route: 048

REACTIONS (19)
  - AKINESIA [None]
  - BALANCE DISORDER [None]
  - CONDITION AGGRAVATED [None]
  - CONTUSION [None]
  - DEPRESSED LEVEL OF CONSCIOUSNESS [None]
  - DRUG EFFECT DECREASED [None]
  - DRUG EFFECT DELAYED [None]
  - DRUG INTERACTION [None]
  - DYSKINESIA [None]
  - FALL [None]
  - FATIGUE [None]
  - HYPOAESTHESIA [None]
  - ILL-DEFINED DISORDER [None]
  - INSOMNIA [None]
  - JOINT SWELLING [None]
  - MUSCULAR WEAKNESS [None]
  - SENSORY LOSS [None]
  - SOMNOLENCE [None]
  - TREMOR [None]
